FAERS Safety Report 5388479-2 (Version None)
Quarter: 2007Q3

REPORT INFORMATION
  Report Type: 
  Country: None (occurrence: None)
  Receive Date: 20070716
  Receipt Date: 20070704
  Transmission Date: 20080115
  Serious: Yes (Death, Hospitalization, Other)
  Sender: FDA-Public Use
  Company Number: GR-PFIZER INC-2007055031

PATIENT
  Age: 11 Year

DRUGS (2)
  1. MEDROL [Suspect]
     Indication: ENCEPHALITIS
  2. PHENOBARBITAL TAB [Concomitant]

REACTIONS (5)
  - ASTHENIA [None]
  - DEATH [None]
  - EXOPHTHALMOS [None]
  - GAIT DISTURBANCE [None]
  - PYREXIA [None]
